FAERS Safety Report 9641580 (Version 3)
Quarter: 2013Q4

REPORT INFORMATION
  Report Type: Spontaneous
  Country: BE (occurrence: BE)
  Receive Date: 20131023
  Receipt Date: 20131126
  Transmission Date: 20140711
  Serious: Yes (Other)
  Sender: FDA-Public Use
  Company Number: BE-TEVA-439309ISR

PATIENT
  Age: 67 Year
  Sex: Female

DRUGS (3)
  1. TAMOXIFEN [Suspect]
     Indication: OESTROGEN RECEPTOR POSITIVE BREAST CANCER
     Dosage: 20 MILLIGRAM DAILY;
     Dates: start: 201203, end: 201210
  2. BISOPROLOL [Concomitant]
     Dosage: 5 MILLIGRAM DAILY;
  3. BUSCOPAN [Concomitant]

REACTIONS (1)
  - Porphyria non-acute [Recovering/Resolving]
